FAERS Safety Report 7906932-1 (Version None)
Quarter: 2011Q4

REPORT INFORMATION
  Report Type: 
  Country: None (occurrence: None)
  Receive Date: 20111110
  Receipt Date: 20111107
  Transmission Date: 20120403
  Serious: Yes (Other)
  Sender: FDA-Public Use
  Company Number: JP-PFIZER INC-2010158062

PATIENT
  Age: 64 Year
  Sex: Male
  Weight: 76.6 kg

DRUGS (6)
  1. LEVOTHYROXINE SODIUM [Concomitant]
     Dosage: UNK
     Route: 048
     Dates: start: 20010401
  2. DIOVAN [Concomitant]
     Dosage: UNK
     Route: 048
     Dates: start: 20030319
  3. NORVASC [Concomitant]
     Dosage: UNK
     Route: 048
     Dates: start: 20030917
  4. TESTOSTERONE ENANTATE [Concomitant]
     Dosage: UNK
     Route: 030
     Dates: start: 20060203
  5. CORTRIL [Concomitant]
     Dosage: UNK
     Route: 048
     Dates: start: 20010401
  6. SOMATROPIN RDNA [Suspect]
     Indication: HYPOPITUITARISM
     Dosage: 1.4 MG, WEEKLY
     Route: 058
     Dates: start: 20081001

REACTIONS (1)
  - PITUITARY TUMOUR BENIGN [None]
